FAERS Safety Report 12681686 (Version 4)
Quarter: 2017Q2

REPORT INFORMATION
  Report Type: Report from Study
  Country: CA (occurrence: CA)
  Receive Date: 20160824
  Receipt Date: 20170609
  Transmission Date: 20170830
  Serious: Yes (Other)
  Sender: FDA-Public Use
  Company Number: PHHY2015CA073357

PATIENT
  Sex: Female

DRUGS (1)
  1. GILENYA [Suspect]
     Active Substance: FINGOLIMOD HYDROCHLORIDE
     Indication: PRODUCT USED FOR UNKNOWN INDICATION
     Dosage: UNK
     Route: 048
     Dates: start: 20150114, end: 20170421

REACTIONS (5)
  - Feeling hot [Unknown]
  - Erythema [Unknown]
  - Drug ineffective [Unknown]
  - Hemiparesis [Unknown]
  - Multiple sclerosis relapse [Unknown]
